FAERS Safety Report 8617740 (Version 8)
Quarter: 2014Q2

REPORT INFORMATION
  Report Type: Spontaneous
  Country: FR (occurrence: FR)
  Receive Date: 20120615
  Receipt Date: 20140626
  Transmission Date: 20141212
  Serious: Yes (Life-Threatening, Disabling)
  Sender: FDA-Public Use
  Company Number: FR-GLAXOSMITHKLINE-B0806641A

PATIENT
  Age: 45 Year
  Sex: Female
  Weight: 68 kg

DRUGS (4)
  1. LAMICTAL [Suspect]
     Indication: EPILEPSY
     Route: 048
     Dates: start: 20120317, end: 20120404
  2. PARACETAMOL [Concomitant]
     Dates: start: 201203
  3. OFLOCET [Concomitant]
     Indication: URINARY TRACT INFECTION
     Dosage: 2UNIT PER DAY
     Route: 065
     Dates: start: 20120402, end: 20120403
  4. AUGMENTIN [Concomitant]
     Indication: URINARY TRACT INFECTION
     Route: 065
     Dates: start: 201204

REACTIONS (44)
  - Toxic epidermal necrolysis [Recovered/Resolved with Sequelae]
  - Rash maculo-papular [Recovered/Resolved with Sequelae]
  - Rash pustular [Recovered/Resolved with Sequelae]
  - Mucosal erosion [Recovered/Resolved with Sequelae]
  - Aphagia [Recovered/Resolved with Sequelae]
  - Oesophageal stenosis [Not Recovered/Not Resolved]
  - Genital erosion [Recovered/Resolved]
  - Weight decreased [Not Recovered/Not Resolved]
  - Asthenia [Not Recovered/Not Resolved]
  - Visual acuity reduced [Recovered/Resolved with Sequelae]
  - Photophobia [Not Recovered/Not Resolved]
  - Eye pain [Not Recovered/Not Resolved]
  - Alopecia [Not Recovered/Not Resolved]
  - Onychomadesis [Not Recovered/Not Resolved]
  - Fatigue [Not Recovered/Not Resolved]
  - Sensory loss [Not Recovered/Not Resolved]
  - Amnesia [Not Recovered/Not Resolved]
  - Mobility decreased [Not Recovered/Not Resolved]
  - Muscular weakness [Not Recovered/Not Resolved]
  - Incorrect drug administration rate [Unknown]
  - Dermatitis allergic [Recovered/Resolved with Sequelae]
  - Conjunctivitis [Unknown]
  - Chills [Unknown]
  - Lip oedema [Unknown]
  - Skin disorder [Recovered/Resolved with Sequelae]
  - Hyperthermia [Unknown]
  - Blister [Recovered/Resolved with Sequelae]
  - Nikolsky^s sign [Recovered/Resolved with Sequelae]
  - Peripheral swelling [Unknown]
  - Thrombophlebitis [Unknown]
  - Macule [Recovered/Resolved with Sequelae]
  - Amenorrhoea [Unknown]
  - Hypoaesthesia [Not Recovered/Not Resolved]
  - Keratitis [Not Recovered/Not Resolved]
  - Blepharitis [Not Recovered/Not Resolved]
  - Trichiasis [Not Recovered/Not Resolved]
  - Regurgitation [Not Recovered/Not Resolved]
  - Nausea [Not Recovered/Not Resolved]
  - Vocal cord disorder [Not Recovered/Not Resolved]
  - Dysphagia [Unknown]
  - Vomiting [Not Recovered/Not Resolved]
  - Madarosis [Not Recovered/Not Resolved]
  - Sexual dysfunction [Not Recovered/Not Resolved]
  - Dry eye [Not Recovered/Not Resolved]
